FAERS Safety Report 8826230 (Version 3)
Quarter: 2013Q2

REPORT INFORMATION
  Report Type: Report from Study
  Country: DE (occurrence: DE)
  Receive Date: 20121005
  Receipt Date: 20130619
  Transmission Date: 20140414
  Serious: Yes (Hospitalization)
  Sender: FDA-Public Use
  Company Number: DE-PFIZER INC-2012244913

PATIENT
  Age: 40 Year
  Sex: Female
  Weight: 105 kg

DRUGS (8)
  1. GENOTROPIN [Suspect]
     Indication: HYPOPITUITARISM
     Dosage: 0.6 IU, 1X/DAY
     Route: 058
     Dates: start: 19991208, end: 20000316
  2. GENOTROPIN [Suspect]
     Dosage: 1.2 IU, 1X/DAY
     Route: 058
     Dates: start: 20000317, end: 20010109
  3. GENOTROPIN [Suspect]
     Dosage: 1.8 IU, 1X/DAY
     Route: 058
     Dates: start: 20010110
  4. EUTHYROX [Concomitant]
     Indication: BLOOD THYROID STIMULATING HORMONE DECREASED
     Dosage: 1 DF, 1X/DAY
     Route: 048
     Dates: start: 20000830
  5. MERICOMB [Concomitant]
     Indication: BLOOD LUTEINISING HORMONE DECREASED
     Dosage: 1 DF, 1X/DAY
     Route: 048
     Dates: start: 20000830
  6. MERICOMB [Concomitant]
     Indication: BLOOD FOLLICLE STIMULATING HORMONE DECREASED
  7. MERICOMB [Concomitant]
     Indication: HYPOGONADISM FEMALE
  8. MINIRIN [Concomitant]
     Indication: DIABETES INSIPIDUS
     Dosage: 2 MG, 5 TABLETS, DAILY
     Route: 048
     Dates: start: 20010901

REACTIONS (1)
  - Femoral hernia [Recovered/Resolved]
